FAERS Safety Report 17233807 (Version 1)
Quarter: 2020Q1

REPORT INFORMATION
  Report Type: Spontaneous
  Country: US (occurrence: US)
  Receive Date: 20200106
  Receipt Date: 20200106
  Transmission Date: 20200409
  Serious: No
  Sender: FDA-Public Use
  Company Number: US-APOTEX-2019AP025381

PATIENT
  Sex: Male

DRUGS (1)
  1. NICOTINE. [Suspect]
     Active Substance: NICOTINE
     Indication: PRODUCT USED FOR UNKNOWN INDICATION
     Dosage: UNK, (APPLIED 14 PATCHES FROM THE FIRST BOX AND 5 PATCHES FROM THE SECOND BOX)
     Route: 062

REACTIONS (2)
  - Drug ineffective [Unknown]
  - Nicotine dependence [Recovered/Resolved]
